FAERS Safety Report 9934519 (Version 2)
Quarter: 2014Q2

REPORT INFORMATION
  Report Type: Spontaneous
  Country: DE (occurrence: DE)
  Receive Date: 20140228
  Receipt Date: 20140406
  Transmission Date: 20141212
  Serious: Yes (Other)
  Sender: FDA-Public Use
  Company Number: DE-BRISTOL-MYERS SQUIBB COMPANY-20305702

PATIENT
  Age: 73 Year
  Sex: Female
  Weight: 90 kg

DRUGS (7)
  1. BYETTA PEN DISPOSABLE [Suspect]
  2. RAMIPRIL [Concomitant]
  3. CLOPIDOGREL BISULFATE [Concomitant]
  4. SIMVASTATIN [Concomitant]
  5. HYGROTON [Concomitant]
  6. PANTOPRAZOLE [Concomitant]
  7. ATACAND [Concomitant]

REACTIONS (1)
  - Hepatic lesion [Not Recovered/Not Resolved]
